FAERS Safety Report 8543467-X (Version None)
Quarter: 2012Q3

REPORT INFORMATION
  Report Type: 
  Country: None (occurrence: None)
  Receive Date: 20120727
  Receipt Date: 20120724
  Transmission Date: 20120928
  Serious: Yes (Other)
  Sender: FDA-Public Use
  Company Number: PHEH2012US014561

PATIENT
  Sex: Male

DRUGS (3)
  1. RECLAST [Suspect]
     Dosage: UNK UKN, UNK
     Route: 042
     Dates: start: 20100101
  2. RECLAST [Suspect]
     Dosage: UNK UKN, UNK
     Route: 042
  3. RECLAST [Suspect]
     Dosage: UNK UKN, UNK
     Route: 042

REACTIONS (2)
  - SPEECH DISORDER [None]
  - MEMORY IMPAIRMENT [None]
